FAERS Safety Report 6616432-7 (Version None)
Quarter: 2010Q1

REPORT INFORMATION
  Report Type: 
  Country: None (occurrence: None)
  Receive Date: 20100305
  Receipt Date: 20100302
  Transmission Date: 20100710
  Serious: Yes (Death, Other)
  Sender: FDA-Public Use
  Company Number: PHHY2010JP12245

PATIENT
  Age: 63 Year
  Sex: Male

DRUGS (2)
  1. ZOMETA [Suspect]
     Indication: METASTASES TO BONE
     Dosage: UNK
     Route: 042
     Dates: start: 20070101, end: 20070701
  2. PREDONINE [Concomitant]
     Dosage: 10 MG, UNK
     Dates: start: 20051101

REACTIONS (5)
  - BONE OPERATION [None]
  - GINGIVAL PAIN [None]
  - OPEN WOUND [None]
  - OSTEONECROSIS [None]
  - PROSTATE CANCER [None]
